FAERS Safety Report 15779108 (Version 1)
Quarter: 2019Q1

REPORT INFORMATION
  Report Type: Spontaneous
  Country: US (occurrence: US)
  Receive Date: 20190101
  Receipt Date: 20190101
  Transmission Date: 20190417
  Serious: No
  Sender: FDA-Public Use
  Company Number: US-JNJFOC-20181224655

PATIENT
  Sex: Male
  Weight: 86.18 kg

DRUGS (2)
  1. LIPITOR [Concomitant]
     Active Substance: ATORVASTATIN CALCIUM
     Indication: BLOOD CHOLESTEROL
     Route: 065
  2. TYLENOL EXTRA STRENGTH [Suspect]
     Active Substance: ACETAMINOPHEN
     Indication: HEADACHE
     Route: 048

REACTIONS (1)
  - Inappropriate schedule of product administration [Unknown]
